FAERS Safety Report 16926184 (Version 2)
Quarter: 2019Q4

REPORT INFORMATION
  Report Type: Spontaneous
  Country: CH (occurrence: CH)
  Receive Date: 20191016
  Receipt Date: 20191128
  Transmission Date: 20200122
  Serious: Yes (Other)
  Sender: FDA-Public Use
  Company Number: CH-BAUSCH-BL-2019-057701

PATIENT
  Age: 32 Year
  Sex: Female

DRUGS (1)
  1. ACNATAC (CLINDAMYCIN, TRETINOIN) [Suspect]
     Active Substance: CLINDAMYCIN PHOSPHATE\TRETINOIN
     Indication: ACNE
     Route: 061
     Dates: start: 201905

REACTIONS (4)
  - Maternal exposure during pregnancy [Unknown]
  - Incorrect product administration duration [Unknown]
  - No adverse event [Unknown]
  - Contraindicated product administered [Unknown]

NARRATIVE: CASE EVENT DATE: 2019
